FAERS Safety Report 24396306 (Version 2)
Quarter: 2024Q4

REPORT INFORMATION
  Report Type: Spontaneous
  Country: BE (occurrence: BE)
  Receive Date: 20241004
  Receipt Date: 20241119
  Transmission Date: 20250115
  Serious: Yes (Hospitalization, Other)
  Sender: PFIZER
  Company Number: BE-ELI_LILLY_AND_COMPANY-BE202409008473

PATIENT
  Age: 76 Year

DRUGS (6)
  1. SPIRONOLACTONE [Suspect]
     Active Substance: SPIRONOLACTONE
     Dosage: UNK
  2. BUMETANIDE [Suspect]
     Active Substance: BUMETANIDE
     Dosage: UNK
  3. PERINDOPRIL ARGININE [Suspect]
     Active Substance: PERINDOPRIL ARGININE
     Dosage: UNK
  4. JARDIANCE [Suspect]
     Active Substance: EMPAGLIFLOZIN
     Dosage: UNK
  5. LIPITOR [Suspect]
     Active Substance: ATORVASTATIN CALCIUM
     Dosage: UNK
  6. ABEMACICLIB [Suspect]
     Active Substance: ABEMACICLIB
     Dosage: 150 MG, 2X/DAY
     Dates: start: 20240820, end: 20240902

REACTIONS (12)
  - Acute kidney injury [Recovered/Resolved]
  - Staphylococcal sepsis [Unknown]
  - Thrombocytopenia [Unknown]
  - Acidosis [Unknown]
  - Hypophagia [Unknown]
  - Nausea [Unknown]
  - Headache [Unknown]
  - Hypotension [Unknown]
  - Diarrhoea [Unknown]
  - Weight decreased [Unknown]
  - Asthenia [Unknown]
  - Vomiting [Unknown]

NARRATIVE: CASE EVENT DATE: 20240902
